FAERS Safety Report 23374963 (Version 2)
Quarter: 2024Q1

REPORT INFORMATION
  Report Type: Report from Study
  Country: BR (occurrence: BR)
  Receive Date: 20240106
  Receipt Date: 20240216
  Transmission Date: 20240410
  Serious: Yes (Other)
  Sender: FDA-Public Use
  Company Number: BR-UCBSA-2024000202

PATIENT
  Sex: Female
  Weight: 60 kg

DRUGS (5)
  1. CERTOLIZUMAB PEGOL [Suspect]
     Active Substance: CERTOLIZUMAB PEGOL
     Indication: Rheumatoid arthritis
     Dosage: 200 MILLIGRAM, EV 15 DAYS
     Route: 058
     Dates: end: 202310
  2. DIURIX [FUROSEMIDE] [Concomitant]
     Indication: Hypertension
     Dosage: UNK, ONCE DAILY (QD)
     Route: 048
  3. LOSARTAN [Concomitant]
     Active Substance: LOSARTAN
     Indication: Hypertension
     Dosage: UNK, 2X/DAY (BID)
     Route: 048
  4. BESILAPIN [Concomitant]
     Indication: Hypertension
     Dosage: UNK, ONCE DAILY (QD)
     Route: 048
  5. BARICITINIB [Concomitant]
     Active Substance: BARICITINIB
     Indication: Rheumatoid arthritis
     Dosage: UNK
     Route: 048
     Dates: start: 2023

REACTIONS (3)
  - Weight decreased [Recovered/Resolved]
  - Fibromyalgia [Unknown]
  - Drug ineffective [Unknown]

NARRATIVE: CASE EVENT DATE: 20230101
